FAERS Safety Report 5503759-5 (Version None)
Quarter: 2007Q4

REPORT INFORMATION
  Report Type: 
  Country: None (occurrence: None)
  Receive Date: 20071030
  Receipt Date: 20071030
  Transmission Date: 20080405
  Serious: Yes (Other)
  Sender: FDA-Public Use
  Company Number: None

PATIENT
  Age: 7 Year
  Sex: Male
  Weight: 31.7518 kg

DRUGS (2)
  1. STRATTERA [Suspect]
     Indication: ATTENTION DEFICIT/HYPERACTIVITY DISORDER
     Dosage: 60MG  2 TIMES PER DAY
     Dates: start: 20020222, end: 20020426
  2. STRATTERA [Suspect]
     Dosage: 40MG  2 TIMES PER DAY

REACTIONS (3)
  - ENURESIS [None]
  - GYNAECOMASTIA [None]
  - OVERWEIGHT [None]
